FAERS Safety Report 17770270 (Version 1)
Quarter: 2020Q2

REPORT INFORMATION
  Report Type: Spontaneous
  Country: CZ (occurrence: CZ)
  Receive Date: 20200512
  Receipt Date: 20200512
  Transmission Date: 20200714
  Serious: Yes (Death)
  Sender: FDA-Public Use
  Company Number: CZ-MYLANLABS-2020M1045471

PATIENT
  Age: 77 Year
  Sex: Male

DRUGS (7)
  1. NOVALGIN (METAMIZOLE SODIUM) [Concomitant]
     Active Substance: METAMIZOLE SODIUM
     Indication: PRODUCT USED FOR UNKNOWN INDICATION
     Dosage: 1000 MG, Q12H
     Route: 042
  2. PLASMALYTE [Concomitant]
     Active Substance: ELECTROLYTES NOS
     Indication: PRODUCT USED FOR UNKNOWN INDICATION
     Dosage: 1000 ML
     Route: 065
  3. FENTANYL. [Suspect]
     Active Substance: FENTANYL
     Dosage: 25MCH/H AFTER A WEEK
     Route: 062
  4. PARALEN                            /00020001/ [Concomitant]
     Indication: PYREXIA
     Dosage: UNK
     Route: 065
  5. PAXIRASOL [Concomitant]
     Indication: PRODUCT USED FOR UNKNOWN INDICATION
     Dosage: 12 MG
     Route: 065
  6. DIAZEPAM. [Concomitant]
     Active Substance: DIAZEPAM
     Indication: DISCOMFORT
     Dosage: 10 MG AS NEEDED
     Route: 054
  7. FENTANYL. [Suspect]
     Active Substance: FENTANYL
     Indication: PAIN
     Dosage: 12.5 MCG/H
     Route: 062

REACTIONS (5)
  - Death [Fatal]
  - Dyspnoea [Unknown]
  - Oxygen saturation decreased [Unknown]
  - Muscle spasms [Unknown]
  - Secretion discharge [Unknown]

NARRATIVE: CASE EVENT DATE: 20191226
